FAERS Safety Report 14987150 (Version 1)
Quarter: 2018Q2

REPORT INFORMATION
  Report Type: Report from Study
  Country: None (occurrence: US)
  Receive Date: 20180608
  Receipt Date: 20180608
  Transmission Date: 20180711
  Serious: Yes (Hospitalization)
  Sender: FDA-Public Use
  Company Number: US-ABBVIE-18K-163-2358774-00

PATIENT
  Age: 33 Year
  Sex: Female
  Weight: 68.1 kg

DRUGS (2)
  1. PANTOPRAZOLE [Concomitant]
     Active Substance: PANTOPRAZOLE
     Indication: GASTROOESOPHAGEAL REFLUX DISEASE
  2. HUMIRA [Suspect]
     Active Substance: ADALIMUMAB
     Indication: CROHN^S DISEASE
     Route: 058
     Dates: start: 201803, end: 20180511

REACTIONS (6)
  - Gastrointestinal sounds abnormal [Recovering/Resolving]
  - Intestinal obstruction [Recovered/Resolved]
  - Diarrhoea [Recovering/Resolving]
  - Crohn^s disease [Recovering/Resolving]
  - Procedural pain [Recovering/Resolving]
  - Abdominal pain upper [Recovering/Resolving]

NARRATIVE: CASE EVENT DATE: 201805
